FAERS Safety Report 6041982-4 (Version None)
Quarter: 2009Q1

REPORT INFORMATION
  Report Type: 
  Country: None (occurrence: None)
  Receive Date: 20090116
  Receipt Date: 20090109
  Transmission Date: 20090719
  Serious: Yes (Hospitalization)
  Sender: FDA-Public Use
  Company Number: DE-TEVA-183635ISR

PATIENT
  Age: 86 Year
  Sex: Female

DRUGS (9)
  1. ENALAPRIL MALEATE [Suspect]
     Indication: HYPERTENSION
     Route: 048
  2. AMIODARONE HYDROCHLORIDE [Suspect]
     Indication: SUPRAVENTRICULAR TACHYCARDIA
     Route: 048
  3. SPIRONOLACTONE [Suspect]
     Indication: OEDEMA
     Route: 048
     Dates: end: 20080805
  4. TORSEMIDE [Suspect]
     Indication: CARDIAC FAILURE
     Route: 048
     Dates: end: 20080805
  5. ACETYLSALICYLIC ACID SRT [Concomitant]
     Indication: PROPHYLAXIS
     Route: 048
  6. CARVEDILOL [Concomitant]
     Indication: HYPERTENSION
     Route: 048
  7. LEVOTHYROXINE SODIUM [Concomitant]
     Indication: HYPOTHYROIDISM
     Route: 048
     Dates: start: 20080801
  8. PENTAERITHRITYL TETRANITRATE [Concomitant]
     Indication: ANGINA PECTORIS
     Route: 048
  9. CLOPIDOGREL [Concomitant]
     Indication: PROPHYLAXIS

REACTIONS (5)
  - DEHYDRATION [None]
  - GENERAL PHYSICAL HEALTH DETERIORATION [None]
  - HYPERKALAEMIA [None]
  - HYPONATRAEMIA [None]
  - HYPOTHYROIDISM [None]
